FAERS Safety Report 10314930 (Version 1)
Quarter: 2014Q3

REPORT INFORMATION
  Report Type: Spontaneous
  Country: IT (occurrence: IT)
  Receive Date: 20140718
  Receipt Date: 20140718
  Transmission Date: 20150326
  Serious: Yes (Other)
  Sender: FDA-Public Use
  Company Number: IT-GE HEALTHCARE MEDICAL DIAGNOSTICS-OSCN-PR-1407L-0117

PATIENT
  Age: 23 Year
  Sex: Female

DRUGS (3)
  1. OMNISCAN [Suspect]
     Active Substance: GADODIAMIDE
     Indication: DIAGNOSTIC PROCEDURE
  2. OMNISCAN [Suspect]
     Active Substance: GADODIAMIDE
     Indication: NON-SMALL CELL LUNG CANCER
  3. OMNISCAN [Suspect]
     Active Substance: GADODIAMIDE
     Indication: METASTASES TO CENTRAL NERVOUS SYSTEM
     Dosage: DOSE NOT REPORTED
     Route: 042

REACTIONS (1)
  - Nuclear magnetic resonance imaging brain abnormal [Unknown]
